FAERS Safety Report 18979950 (Version 1)
Quarter: 2021Q1

REPORT INFORMATION
  Report Type: Spontaneous
  Country: US (occurrence: US)
  Receive Date: 20210305
  Receipt Date: 20210305
  Transmission Date: 20210420
  Serious: Yes (Other)
  Sender: FDA-Public Use
  Company Number: None

PATIENT
  Age: 24 Year
  Sex: Male
  Weight: 78.75 kg

DRUGS (10)
  1. OMEGA?3 CF [Concomitant]
  2. MULTIVITAMIN [Concomitant]
     Active Substance: VITAMINS
  3. MAG?OXIDE [Concomitant]
     Active Substance: MAGNESIUM OXIDE
  4. FENOFIBRATE. [Concomitant]
     Active Substance: FENOFIBRATE
  5. URSODIOL. [Concomitant]
     Active Substance: URSODIOL
  6. CYCLOSPORINE. [Concomitant]
     Active Substance: CYCLOSPORINE
  7. ACYCLOVIR. [Concomitant]
     Active Substance: ACYCLOVIR
  8. VITAMIN D HIGH POTENCY [Concomitant]
  9. DEFERASIROX. [Suspect]
     Active Substance: DEFERASIROX
     Indication: HAEMOCHROMATOSIS
     Route: 048
     Dates: start: 20200704, end: 20210305
  10. SULFAMETHOXAZOLE?TRIMETHOPRIM [Concomitant]
     Active Substance: SULFAMETHOXAZOLE\TRIMETHOPRIM

REACTIONS (1)
  - Hepatic enzyme increased [None]

NARRATIVE: CASE EVENT DATE: 20210305
